FAERS Safety Report 5419238-X (Version None)
Quarter: 2007Q3

REPORT INFORMATION
  Report Type: 
  Country: None (occurrence: None)
  Receive Date: 20070817
  Receipt Date: 20070817
  Transmission Date: 20080115
  Serious: Yes (Other)
  Sender: FDA-Public Use
  Company Number: None

PATIENT
  Age: 32 Year
  Sex: Male
  Weight: 94.8018 kg

DRUGS (1)
  1. PRIMAQUINE [Suspect]
     Indication: MALARIA PROPHYLAXIS
     Dosage: 15 MG DAILY
     Dates: start: 20070605, end: 20070609

REACTIONS (4)
  - BLISTER [None]
  - RASH [None]
  - RASH PAPULAR [None]
  - RASH PRURITIC [None]
